FAERS Safety Report 25874441 (Version 1)
Quarter: 2025Q4

REPORT INFORMATION
  Report Type: Spontaneous
  Country: US (occurrence: None)
  Receive Date: 20251002
  Receipt Date: 20251002
  Transmission Date: 20260119
  Serious: Yes (Life-Threatening)
  Sender: FDA-CTU
  Company Number: None

PATIENT
  Age: 85 Year
  Sex: Male
  Weight: 60.75 kg

DRUGS (1)
  1. OHTUVAYRE [Suspect]
     Active Substance: ENSIFENTRINE
     Indication: Chronic obstructive pulmonary disease
     Dosage: 2.5 ML TWICE A DAY RESPIRATORY (INHALATION)
     Route: 055
     Dates: start: 20250720, end: 20250918

REACTIONS (3)
  - Depression [None]
  - Suicidal ideation [None]
  - Therapy cessation [None]

NARRATIVE: CASE EVENT DATE: 20250918
